FAERS Safety Report 9843760 (Version 1)
Quarter: 2013Q4

REPORT INFORMATION
  Report Type: Spontaneous
  Country: US (occurrence: None)
  Receive Date: 20131223
  Receipt Date: 20131223
  Transmission Date: 20140711
  Serious: No
  Sender: FDA-Public Use
  Company Number: 1000050648

PATIENT
  Sex: Female

DRUGS (1)
  1. LINZESS [Suspect]
     Indication: ABDOMINAL PAIN
     Dosage: 290 MCG (290 MCG, 1 IN 1 D), ORAL
     Route: 048
     Dates: start: 2013, end: 2013

REACTIONS (5)
  - Abdominal distension [None]
  - Flatulence [None]
  - Pollakiuria [None]
  - Dysuria [None]
  - Off label use [None]
